FAERS Safety Report 7617677-X (Version None)
Quarter: 2011Q3

REPORT INFORMATION
  Report Type: 
  Country: None (occurrence: None)
  Receive Date: 20110718
  Receipt Date: 20110711
  Transmission Date: 20111222
  Serious: Yes (Death, Other)
  Sender: FDA-Public Use
  Company Number: US-ASTELLAS-2011US003814

PATIENT
  Age: 62 Year
  Sex: Male

DRUGS (4)
  1. ALEMTUZUMAB [Suspect]
     Indication: HEART TRANSPLANT
     Dosage: UNK
     Route: 065
  2. PROGRAF [Suspect]
     Indication: HEART TRANSPLANT
     Dosage: UNK
     Route: 065
  3. MYCOPHENOLATE MOFETIL [Suspect]
     Indication: HEART TRANSPLANT
     Dosage: UNK
     Route: 065
  4. IMMUNE GLOBULIN NOS [Suspect]
     Indication: HEART TRANSPLANT
     Dosage: UNK
     Route: 042

REACTIONS (4)
  - TOXOPLASMOSIS [None]
  - SEPTIC SHOCK [None]
  - RENAL INJURY [None]
  - PNEUMONIA [None]
